FAERS Safety Report 9245375 (Version 2)
Quarter: 2013Q2

REPORT INFORMATION
  Report Type: Spontaneous
  Country: US (occurrence: None)
  Receive Date: 20121123
  Receipt Date: 20130225
  Transmission Date: 20140414
  Serious: No
  Sender: FDA-Public Use
  Company Number: 362380

PATIENT
  Age: 52 Year
  Sex: Female
  Weight: 88 kg

DRUGS (5)
  1. VICTOZA [Suspect]
     Indication: GLUCOSE TOLERANCE IMPAIRED
     Route: 058
     Dates: start: 20120808
  2. ATIVAN (LORAZEPAM) [Concomitant]
  3. IMITREX (SUMATRIPTAN) [Concomitant]
  4. LEXAPRO (ESCITALOPRAM OXALATE) [Concomitant]
  5. NYSTATIN (NYSTATIN) [Concomitant]

REACTIONS (7)
  - Fatigue [None]
  - Dizziness [None]
  - Asthenia [None]
  - Lethargy [None]
  - Drug ineffective [None]
  - Glossodynia [None]
  - Fibromyalgia [None]
